FAERS Safety Report 14647601 (Version 3)
Quarter: 2018Q2

REPORT INFORMATION
  Report Type: Spontaneous
  Country: US (occurrence: US)
  Receive Date: 20180316
  Receipt Date: 20180424
  Transmission Date: 20180711
  Serious: No
  Sender: FDA-Public Use
  Company Number: US-GLAXOSMITHKLINE-US2018043276

PATIENT
  Sex: Female
  Weight: 54.42 kg

DRUGS (2)
  1. ANORO ELLIPTA [Suspect]
     Active Substance: UMECLIDINIUM BROMIDE\VILANTEROL TRIFENATATE
     Indication: CHRONIC OBSTRUCTIVE PULMONARY DISEASE
     Dosage: 1 PUFF(S), 1D
     Route: 055
     Dates: start: 2017
  2. MUCINEX [Concomitant]
     Active Substance: GUAIFENESIN

REACTIONS (9)
  - Chronic obstructive pulmonary disease [Unknown]
  - Cough [Recovering/Resolving]
  - Ill-defined disorder [Recovering/Resolving]
  - Drug ineffective [Unknown]
  - Wrong technique in device usage process [Unknown]
  - Drug dose omission [Unknown]
  - Product quality issue [Unknown]
  - Sputum increased [Recovering/Resolving]
  - Increased bronchial secretion [Recovering/Resolving]
